FAERS Safety Report 18706827 (Version 3)
Quarter: 2021Q1

REPORT INFORMATION
  Report Type: Spontaneous
  Country: GH (occurrence: GH)
  Receive Date: 20210106
  Receipt Date: 20210121
  Transmission Date: 20210419
  Serious: Yes (Other)
  Sender: FDA-Public Use
  Company Number: GH-PFIZER INC-2020519512

PATIENT
  Age: 3 Week
  Sex: Male
  Weight: 1.2 kg

DRUGS (9)
  1. CYCLOPHOSPHAMIDE. [Suspect]
     Active Substance: CYCLOPHOSPHAMIDE
     Indication: BREAST CANCER
     Dosage: UNK, CYCLIC, 6 CYCLES  (PRIOR TO DELIVERY)
     Route: 064
  2. DOXORUBICIN HCL [Suspect]
     Active Substance: DOXORUBICIN HYDROCHLORIDE
     Indication: METASTASES TO LUNG
  3. FLUOROURACIL. [Suspect]
     Active Substance: FLUOROURACIL
     Indication: BREAST CANCER
     Dosage: UNK, CYCLIC, 6 CYCLES (PRIOR TO DELIVERY)
     Route: 064
  4. FLUOROURACIL. [Suspect]
     Active Substance: FLUOROURACIL
     Indication: METASTASES TO LUNG
  5. DOXORUBICIN HCL [Suspect]
     Active Substance: DOXORUBICIN HYDROCHLORIDE
     Indication: BREAST CANCER
     Dosage: UNK, CYCLIC, 6 CYCLES  (PRIOR TO DELIVERY)
     Route: 064
  6. CYCLOPHOSPHAMIDE. [Suspect]
     Active Substance: CYCLOPHOSPHAMIDE
     Indication: METASTASES TO LIVER
  7. FLUOROURACIL. [Suspect]
     Active Substance: FLUOROURACIL
     Indication: METASTASES TO LIVER
  8. CYCLOPHOSPHAMIDE. [Suspect]
     Active Substance: CYCLOPHOSPHAMIDE
     Indication: METASTASES TO LUNG
  9. DOXORUBICIN HCL [Suspect]
     Active Substance: DOXORUBICIN HYDROCHLORIDE
     Indication: METASTASES TO LIVER

REACTIONS (2)
  - Premature baby [Unknown]
  - Maternal exposure during pregnancy [Unknown]
